FAERS Safety Report 20066209 (Version 1)
Quarter: 2021Q4

REPORT INFORMATION
  Report Type: Report from Study
  Country: US (occurrence: US)
  Receive Date: 20211114
  Receipt Date: 20211114
  Transmission Date: 20220304
  Serious: Yes (Hospitalization)
  Sender: FDA-Public Use
  Company Number: US-ABBVIE-21K-163-4155992-00

PATIENT
  Sex: Male

DRUGS (1)
  1. HUMIRA [Suspect]
     Active Substance: ADALIMUMAB
     Indication: Crohn^s disease
     Route: 058
     Dates: start: 20211001, end: 20211029

REACTIONS (3)
  - Chest pain [Unknown]
  - Abdominal pain upper [Unknown]
  - Haematochezia [Unknown]

NARRATIVE: CASE EVENT DATE: 20210101
